FAERS Safety Report 9170549 (Version 1)
Quarter: 2013Q1

REPORT INFORMATION
  Report Type: Spontaneous
  Country: US (occurrence: None)
  Receive Date: 20130312
  Receipt Date: 20130312
  Transmission Date: 20140127
  Serious: Yes (Other)
  Sender: FDA-Public Use
  Company Number: MSER20130008

PATIENT
  Age: 71 Year
  Sex: Male

DRUGS (4)
  1. MORPHINE SULFATE ER [Suspect]
     Route: 048
  2. CARBOPLATIN [Suspect]
  3. PACLITAXEL [Suspect]
  4. ZOLEDRONIC ACID [Suspect]

REACTIONS (5)
  - Abdominal distension [None]
  - Abdominal pain upper [None]
  - Blood alkaline phosphatase increased [None]
  - Gamma-glutamyltransferase increased [None]
  - Constipation [None]
